FAERS Safety Report 10629604 (Version 1)
Quarter: 2014Q4

REPORT INFORMATION
  Report Type: Spontaneous
  Country: US (occurrence: US)
  Receive Date: 20141205
  Receipt Date: 20141205
  Transmission Date: 20150529
  Serious: No
  Sender: FDA-Public Use
  Company Number: US-BRISTOL-MYERS SQUIBB COMPANY-21457502

PATIENT
  Age: 18 Year
  Sex: Female

DRUGS (2)
  1. ABILIFY [Suspect]
     Active Substance: ARIPIPRAZOLE
     Dosage: DOSE WAS INCREASED TO 2MG
     Dates: start: 201309
  2. ABILIFY [Suspect]
     Active Substance: ARIPIPRAZOLE

REACTIONS (2)
  - Tardive dyskinesia [Recovered/Resolved]
  - Wrong technique in drug usage process [Unknown]

NARRATIVE: CASE EVENT DATE: 201405
